FAERS Safety Report 8995054 (Version 1)
Quarter: 2012Q4

REPORT INFORMATION
  Report Type: Spontaneous
  Country: US (occurrence: None)
  Receive Date: 20121228
  Receipt Date: 20121228
  Transmission Date: 20130627
  Serious: Yes (Hospitalization, Other)
  Sender: FDA-Public Use
  Company Number: None

PATIENT
  Age: 63 Year
  Sex: Male
  Weight: 72 kg

DRUGS (1)
  1. WARFARIN [Suspect]
     Dosage: 5 MG HS PO
     Route: 048

REACTIONS (3)
  - Hypertensive emergency [None]
  - International normalised ratio increased [None]
  - Toxicity to various agents [None]
